FAERS Safety Report 4465326-4 (Version None)
Quarter: 2004Q3

REPORT INFORMATION
  Report Type: 
  Country: None (occurrence: None)
  Receive Date: 20040929
  Receipt Date: 20040914
  Transmission Date: 20050211
  Serious: Yes (Hospitalization, Other)
  Sender: FDA-Public Use
  Company Number: USA040978245

PATIENT
  Sex: Female

DRUGS (12)
  1. HUMALOG [Suspect]
     Indication: DIABETES MELLITUS
  2. ACTOS [Concomitant]
  3. LANTUS [Concomitant]
  4. SYNTHROID [Concomitant]
  5. BUMEX [Concomitant]
  6. DIGOXIN [Concomitant]
  7. PREMARIN [Concomitant]
  8. COOUMADIN (WARFARIN SODIUM) [Concomitant]
  9. TRANXENE [Concomitant]
  10. DIOVAN [Concomitant]
  11. ZOCOR [Concomitant]
  12. ZETIA [Concomitant]

REACTIONS (1)
  - HEART VALVE REPLACEMENT [None]
